FAERS Safety Report 9514159 (Version 4)
Quarter: 2014Q1

REPORT INFORMATION
  Report Type: Report from Study
  Country: AR (occurrence: AR)
  Receive Date: 20130910
  Receipt Date: 20140107
  Transmission Date: 20141002
  Serious: Yes (Death, Hospitalization)
  Sender: FDA-Public Use
  Company Number: AR-BRISTOL-MYERS SQUIBB COMPANY-19150739

PATIENT
  Age: 76 Year
  Sex: Male

DRUGS (2)
  1. BELATACEPT [Suspect]
     Indication: RENAL TRANSPLANT
     Dosage: 1 DF: 305 UNITS NOS,DF REPORTED AS 2 GRAM PER DAY.
     Route: 042
     Dates: start: 20070131
  2. MYCOPHENOLATE MOFETIL [Concomitant]
     Dates: start: 20070131, end: 2013

REACTIONS (2)
  - Meningitis cryptococcal [Fatal]
  - Multi-organ failure [Fatal]
